FAERS Safety Report 4596129-8 (Version None)
Quarter: 2005Q1

REPORT INFORMATION
  Report Type: 
  Country: None (occurrence: None)
  Receive Date: 20050225
  Receipt Date: 20050211
  Transmission Date: 20050727
  Serious: Yes (Hospitalization)
  Sender: FDA-Public Use
  Company Number: 0205002

PATIENT
  Age: 38 Year
  Sex: Male

DRUGS (3)
  1. DEPODUR [Suspect]
     Indication: HIP ARTHROPLASTY
     Dosage: (15 MG, ONCE), EPIDURAL
     Route: 008
     Dates: start: 20050118, end: 20050118
  2. DEPODUR [Suspect]
     Indication: POST PROCEDURAL PAIN
     Dosage: (15 MG, ONCE), EPIDURAL
     Route: 008
     Dates: start: 20050118, end: 20050118
  3. PHENERGAN [Concomitant]

REACTIONS (6)
  - DEPRESSED LEVEL OF CONSCIOUSNESS [None]
  - HAEMORRHAGE [None]
  - OXYGEN SATURATION DECREASED [None]
  - RESPIRATORY DEPRESSION [None]
  - SEDATION [None]
  - VISUAL DISTURBANCE [None]
